FAERS Safety Report 9990186 (Version 1)
Quarter: 2014Q1

REPORT INFORMATION
  Report Type: Report from Study
  Country: US (occurrence: US)
  Receive Date: 20140310
  Receipt Date: 20140310
  Transmission Date: 20141002
  Serious: No
  Sender: FDA-Public Use
  Company Number: US-ABBVIE-13P-163-1135356-00

PATIENT
  Age: 69 Year
  Sex: Female
  Weight: 83.99 kg

DRUGS (13)
  1. HUMIRA [Suspect]
     Indication: ANKYLOSING SPONDYLITIS
     Dates: start: 201304, end: 201307
  2. LYRICA [Concomitant]
     Indication: NEUROPATHY PERIPHERAL
  3. BISOPROLOL [Concomitant]
     Indication: HYPERTENSION
  4. AMLODIPINE [Concomitant]
     Indication: HYPERTENSION
  5. PREMARIN [Concomitant]
     Indication: HOT FLUSH
  6. FLUOXETINE [Concomitant]
     Indication: MIGRAINE
  7. ZOLPIDEM [Concomitant]
     Indication: INSOMNIA
  8. ADVAIR [Concomitant]
     Indication: ASTHMA
  9. METHOTREXATE [Concomitant]
     Indication: ANKYLOSING SPONDYLITIS
  10. VENTOLIN [Concomitant]
     Indication: ASTHMA
  11. FOLIC ACID [Concomitant]
     Indication: PRODUCT USED FOR UNKNOWN INDICATION
  12. TRAMADOL [Concomitant]
     Indication: PAIN
  13. ASPIRIN [Concomitant]
     Indication: PROPHYLAXIS

REACTIONS (1)
  - Bronchitis [Recovered/Resolved]
